FAERS Safety Report 6555204-9 (Version None)
Quarter: 2010Q1

REPORT INFORMATION
  Report Type: 
  Country: None (occurrence: None)
  Receive Date: 20100128
  Receipt Date: 20100120
  Transmission Date: 20100710
  Serious: Yes (Other)
  Sender: FDA-Public Use
  Company Number: US-PFIZER INC-2010008099

PATIENT
  Age: 39 Year
  Sex: Female

DRUGS (6)
  1. VORICONAZOLE [Suspect]
     Indication: MENINGITIS COCCIDIOIDES
     Dosage: 300 MG, 2X/DAY
     Dates: start: 20040201, end: 20090901
  2. HYDROXYCHLOROQUINE [Concomitant]
     Dosage: 200 MG, 2X/DAY
     Route: 048
  3. VALACICLOVIR [Concomitant]
  4. LEVONORGESTREL AND ETHINYL ESTRADIOL [Concomitant]
  5. SPIRONOLACTONE [Concomitant]
  6. TORSEMIDE [Concomitant]

REACTIONS (1)
  - MALIGNANT MELANOMA IN SITU [None]
